FAERS Safety Report 12716958 (Version 1)
Quarter: 2016Q3

REPORT INFORMATION
  Report Type: Spontaneous
  Country: JP (occurrence: JP)
  Receive Date: 20160906
  Receipt Date: 20160906
  Transmission Date: 20161109
  Serious: Yes (Death)
  Sender: FDA-Public Use
  Company Number: JP-PFIZER INC-2016413241

PATIENT
  Age: 70 Year
  Sex: Male

DRUGS (1)
  1. CABASER 1.0MG [Suspect]
     Active Substance: CABERGOLINE
     Indication: PARKINSON^S DISEASE
     Dosage: 1 MG, DAILY
     Route: 048

REACTIONS (3)
  - Hair growth abnormal [Unknown]
  - Death [Fatal]
  - Therapeutic response unexpected [Unknown]
